FAERS Safety Report 23974361 (Version 1)
Quarter: 2024Q2

REPORT INFORMATION
  Report Type: Spontaneous
  Country: US (occurrence: US)
  Receive Date: 20240614
  Receipt Date: 20240614
  Transmission Date: 20240716
  Serious: No
  Sender: FDA-Public Use
  Company Number: US-SUN PHARMACEUTICAL INDUSTRIES LTD-2023R1-420221

PATIENT
  Sex: Female

DRUGS (1)
  1. LIOTHYRONINE [Suspect]
     Active Substance: LIOTHYRONINE
     Indication: Hyperthyroidism
     Dosage: UNK
     Route: 065
     Dates: start: 20231115

REACTIONS (3)
  - Recalled product administered [Unknown]
  - Fatigue [Unknown]
  - Ocular hyperaemia [Unknown]
